FAERS Safety Report 18854642 (Version 1)
Quarter: 2021Q1

REPORT INFORMATION
  Report Type: Spontaneous
  Country: CA (occurrence: CA)
  Receive Date: 20210205
  Receipt Date: 20210205
  Transmission Date: 20210420
  Serious: Yes (Hospitalization, Other)
  Sender: FDA-Public Use
  Company Number: CA-NOVOPROD-784071

PATIENT
  Age: 71 Year
  Sex: Male
  Weight: 92 kg

DRUGS (1)
  1. TRESIBA [Suspect]
     Active Substance: INSULIN DEGLUDEC
     Indication: PRODUCT USED FOR UNKNOWN INDICATION
     Dosage: 24 IU
     Route: 058

REACTIONS (2)
  - Myocardial infarction [Unknown]
  - Coronary artery bypass [Unknown]
